FAERS Safety Report 4619114-6 (Version None)
Quarter: 2005Q1

REPORT INFORMATION
  Report Type: 
  Country: None (occurrence: None)
  Receive Date: 20050317
  Receipt Date: 20050317
  Transmission Date: 20050727
  Serious: Yes (Hospitalization)
  Sender: FDA-Public Use
  Company Number: None

PATIENT
  Age: 50 Year
  Sex: Male

DRUGS (9)
  1. IBUPROFEN [Suspect]
  2. IRON SULFATETHIAMIN COMPOUND TAB [Concomitant]
  3. INSULIN [Concomitant]
  4. SERTRALINE HCL [Concomitant]
  5. DILANTIN [Concomitant]
  6. MULTI-VITAMIN [Concomitant]
  7. METOCLOPRAMIDE [Concomitant]
  8. EYE DROPS [Concomitant]
  9. OXYCODONE [Concomitant]

REACTIONS (2)
  - PANCYTOPENIA [None]
  - SEPSIS [None]
